FAERS Safety Report 20350103 (Version 1)
Quarter: 2022Q1

REPORT INFORMATION
  Report Type: Spontaneous
  Country: US (occurrence: None)
  Receive Date: 20220117
  Receipt Date: 20220117
  Transmission Date: 20220424
  Serious: Yes (Other)
  Sender: FDA-Public Use
  Company Number: None

PATIENT
  Age: 21 Year
  Sex: Male
  Weight: 117 kg

DRUGS (1)
  1. OZEMPIC [Suspect]
     Active Substance: SEMAGLUTIDE
     Indication: Type 2 diabetes mellitus
     Dosage: OTHER QUANTITY : .5 INJECTION(S);?OTHER FREQUENCY : ONCE A WEEK;?
     Route: 058
     Dates: start: 20220105, end: 20220112

REACTIONS (6)
  - Abnormal behaviour [None]
  - Decreased appetite [None]
  - Insomnia [None]
  - Emotional disorder [None]
  - Restlessness [None]
  - Sensory disturbance [None]

NARRATIVE: CASE EVENT DATE: 20220105
